FAERS Safety Report 6043726-9 (Version None)
Quarter: 2009Q1

REPORT INFORMATION
  Report Type: 
  Country: None (occurrence: None)
  Receive Date: 20090120
  Receipt Date: 20090108
  Transmission Date: 20090719
  Serious: Yes (Disabling)
  Sender: FDA-Public Use
  Company Number: PHEH2008US09471

PATIENT
  Sex: Female

DRUGS (8)
  1. ZOMETA [Suspect]
     Indication: HYPERCALCAEMIA OF MALIGNANCY
     Dosage: 4 MG, UNK
     Route: 042
     Dates: start: 20080808
  2. TOPROL-XL [Concomitant]
  3. DIOVAN [Concomitant]
  4. LORTAB [Concomitant]
  5. DRISDOL [Concomitant]
  6. FEMARA [Concomitant]
     Dosage: UNK
     Dates: start: 20040101
  7. CRESTOR [Concomitant]
  8. NEXIUM [Concomitant]

REACTIONS (5)
  - ABASIA [None]
  - ARTHRALGIA [None]
  - JOINT SWELLING [None]
  - MYALGIA [None]
  - OEDEMA PERIPHERAL [None]
